FAERS Safety Report 17194609 (Version 1)
Quarter: 2019Q4

REPORT INFORMATION
  Report Type: Spontaneous
  Country: CA (occurrence: CA)
  Receive Date: 20191224
  Receipt Date: 20191224
  Transmission Date: 20200122
  Serious: Yes (Hospitalization)
  Sender: FDA-Public Use
  Company Number: CA-TEVA-2019-CA-1155591

PATIENT
  Age: 43 Year
  Sex: Female

DRUGS (6)
  1. LEVETIRACETAM. [Suspect]
     Active Substance: LEVETIRACETAM
     Indication: SEIZURE
     Route: 048
  2. CLOBAZAM. [Concomitant]
     Active Substance: CLOBAZAM
  3. TOPIRAMATE. [Concomitant]
     Active Substance: TOPIRAMATE
  4. LEVETIRACETAM. [Suspect]
     Active Substance: LEVETIRACETAM
     Indication: PRODUCT USED FOR UNKNOWN INDICATION
     Route: 048
  5. OXCARBAZEPINE. [Concomitant]
     Active Substance: OXCARBAZEPINE
  6. GABAPENTIN. [Concomitant]
     Active Substance: GABAPENTIN

REACTIONS (8)
  - Agitation [Recovered/Resolved]
  - Catatonia [Recovered/Resolved]
  - Decreased appetite [Recovered/Resolved]
  - Hallucination, auditory [Recovered/Resolved]
  - Hallucination, visual [Recovered/Resolved]
  - Social fear [Recovered/Resolved]
  - Psychotic disorder [Recovered/Resolved]
  - Urinary incontinence [Recovered/Resolved]
